FAERS Safety Report 6221861-X (Version None)
Quarter: 2009Q2

REPORT INFORMATION
  Report Type: 
  Country: None (occurrence: None)
  Receive Date: 20090609
  Receipt Date: 20090603
  Transmission Date: 20091009
  Serious: Yes (Hospitalization)
  Sender: FDA-Public Use
  Company Number: 1000006662

PATIENT
  Sex: Female

DRUGS (1)
  1. THYROID TAB [Suspect]
     Dosage: 90 MG (90 MG, 1 IN 1 D) 60 MG (60 MG, 1 IN 1 D) 75 MG (1 IN 1 D)

REACTIONS (1)
  - HEART RATE IRREGULAR [None]
